FAERS Safety Report 6602497-5 (Version None)
Quarter: 2010Q1

REPORT INFORMATION
  Report Type: 
  Country: None (occurrence: None)
  Receive Date: 20100225
  Receipt Date: 20100217
  Transmission Date: 20100710
  Serious: Yes (Other)
  Sender: FDA-Public Use
  Company Number: US-JNJFOC-20100209129

PATIENT
  Sex: Female
  Weight: 85.28 kg

DRUGS (7)
  1. EXTRA STRENGTH TYLENOL PM [Suspect]
     Indication: HEADACHE
     Route: 048
  2. EXTRA STRENGTH TYLENOL PM [Suspect]
     Indication: INITIAL INSOMNIA
     Route: 048
  3. EXTRA STRENGTH TYLENOL [Suspect]
     Route: 048
  4. EXTRA STRENGTH TYLENOL [Suspect]
     Indication: HEADACHE
     Dosage: 2 TO 3 TIMES PER DAY
     Route: 048
  5. RISPERDAL [Concomitant]
     Indication: DEPRESSION
  6. PAXIL [Concomitant]
     Indication: DEPRESSION
  7. PEPCID [Concomitant]
     Indication: HYPERCHLORHYDRIA

REACTIONS (3)
  - ABDOMINAL PAIN UPPER [None]
  - ANGINA PECTORIS [None]
  - PRODUCT QUALITY ISSUE [None]
